FAERS Safety Report 16302513 (Version 1)
Quarter: 2019Q2

REPORT INFORMATION
  Report Type: Spontaneous
  Country: US (occurrence: US)
  Receive Date: 20190513
  Receipt Date: 20190513
  Transmission Date: 20190711
  Serious: No
  Sender: FDA-Public Use
  Company Number: US-009507513-1904USA008539

PATIENT
  Age: 28 Year
  Sex: Male

DRUGS (3)
  1. PROSCAR [Suspect]
     Active Substance: FINASTERIDE
     Indication: ACNE CONGLOBATA
  2. PROSCAR [Suspect]
     Active Substance: FINASTERIDE
     Indication: HIDRADENITIS
     Dosage: UNK
     Route: 048
  3. PROSCAR [Suspect]
     Active Substance: FINASTERIDE
     Indication: ACNE CYSTIC

REACTIONS (1)
  - Product use in unapproved indication [Unknown]
